FAERS Safety Report 7150714-8 (Version None)
Quarter: 2010Q4

REPORT INFORMATION
  Report Type: 
  Country: None (occurrence: None)
  Receive Date: 20101210
  Receipt Date: 20101201
  Transmission Date: 20110411
  Serious: Yes (Other)
  Sender: FDA-Public Use
  Company Number: US-ELI_LILLY_AND_COMPANY-US200910005197

PATIENT
  Sex: Female
  Weight: 72.562 kg

DRUGS (32)
  1. BYETTA [Suspect]
     Indication: TYPE 2 DIABETES MELLITUS
     Dosage: 5 UG, 2/D
     Route: 065
     Dates: start: 20050713
  2. BYETTA [Suspect]
     Dosage: 10 UG, 2/D
     Route: 065
  3. BYETTA [Suspect]
     Dosage: 5 UG, 3/D
     Route: 065
     Dates: end: 20071207
  4. BYETTA [Suspect]
     Dosage: 30 UG, UNKNOWN
     Route: 065
     Dates: start: 20050817, end: 20060903
  5. BYETTA [Suspect]
     Dosage: 10 UG, UNKNOWN
     Route: 065
     Dates: start: 20061017, end: 20061204
  6. BYETTA [Suspect]
     Dosage: 30 UG, UNKNOWN
     Route: 065
     Dates: start: 20061129
  7. BYETTA [Suspect]
     Dosage: 10 UG, UNKNOWN
     Route: 065
     Dates: start: 20061204
  8. BYETTA [Suspect]
     Dosage: 40 UG, UNKNOWN
     Route: 065
     Dates: start: 20060427, end: 20070401
  9. BYETTA [Suspect]
     Dosage: 10 UG, UNKNOWN
     Route: 065
     Dates: start: 20070427, end: 20071101
  10. GLUCOPHAGE [Concomitant]
     Indication: DIABETES MELLITUS
     Dosage: 1000 MG, 2/D
     Route: 065
  11. GLUCOPHAGE [Concomitant]
     Dosage: 500 MG, 3/D
  12. CARDIZEM [Concomitant]
     Dosage: 120 MG, 2/D
     Route: 065
  13. CARDIZEM [Concomitant]
     Dosage: 120 MG, DAILY (1/D)
  14. DEMADEX [Concomitant]
     Indication: FLUID RETENTION
     Dosage: 20 MG, 2/D
     Route: 065
  15. DEMADEX [Concomitant]
     Dosage: 30 MG, DAILY (1/D)
  16. PRINIVIL [Concomitant]
     Dosage: 5 MG, DAILY (1/D)
     Route: 065
  17. ZETIA [Concomitant]
     Dosage: 10 MG, DAILY (1/D)
     Route: 065
  18. CELEXA [Concomitant]
     Indication: DEPRESSION
     Dosage: UNK, UNKNOWN
     Route: 065
  19. NAPROXEN [Concomitant]
     Indication: PAIN
     Dosage: UNK, UNKNOWN
     Route: 065
  20. TYLENOL                                 /SCH/ [Concomitant]
     Indication: PAIN
     Dosage: UNK, UNKNOWN
     Route: 065
  21. LIPITOR [Concomitant]
     Indication: BLOOD CHOLESTEROL
     Dosage: UNK, UNKNOWN
     Route: 065
  22. LIPITOR [Concomitant]
     Dosage: 1 D/F, UNK
  23. XENICAL [Concomitant]
     Dosage: UNK, UNKNOWN
     Route: 065
  24. SYNTHROID [Concomitant]
     Dosage: 50 UG, DAILY (1/D)
     Route: 065
  25. STARLIX [Concomitant]
     Indication: TYPE 2 DIABETES MELLITUS
     Dosage: 100 MG, AS NEEDED
  26. KLONOPIN [Concomitant]
     Dosage: 1.5 MG, AS NEEDED
  27. JANUVIA [Concomitant]
     Dosage: 100 MG, DAILY (1/D)
  28. TRAMADOL [Concomitant]
     Dosage: 1 MG, EVERY 6 HRS AS NEEDED
  29. TRAMADOL [Concomitant]
     Dosage: 2 MG, EVERY 6 HRS AS NEEDED
  30. CYTOMEL [Concomitant]
  31. ALBUTEROL [Concomitant]
  32. AMBIEN [Concomitant]

REACTIONS (5)
  - ANXIETY [None]
  - DEPRESSION [None]
  - INCORRECT DOSE ADMINISTERED [None]
  - PANCREATITIS ACUTE [None]
  - PANCREATITIS CHRONIC [None]
